FAERS Safety Report 16128437 (Version 1)
Quarter: 2019Q1

REPORT INFORMATION
  Report Type: Other
  Country: DE (occurrence: DE)
  Receive Date: 20190328
  Receipt Date: 20190328
  Transmission Date: 20190418
  Serious: Yes (Congenital Anomaly)
  Sender: FDA-Public Use
  Company Number: DE-APOTEX-2019AP010343

PATIENT
  Age: 1 Day
  Sex: Male

DRUGS (4)
  1. OLMESARTAN [Suspect]
     Active Substance: OLMESARTAN
     Indication: ACCIDENTAL EXPOSURE TO PRODUCT
     Dosage: 40 MG, QD,(40 [MG/D ])
     Route: 064
     Dates: start: 20171109, end: 20171116
  2. PANTOPRAZOLE [Suspect]
     Active Substance: PANTOPRAZOLE
     Indication: GASTROOESOPHAGEAL REFLUX DISEASE
     Dosage: UNK,(ALTERNATING WITH OMEPRAZOLE)
     Route: 064
  3. OMEPRAZOLE. [Suspect]
     Active Substance: OMEPRAZOLE
     Indication: GASTROOESOPHAGEAL REFLUX DISEASE
     Dosage: UNK,(ALTERNATING WITH PANTOPRAZOLE)
     Route: 064
  4. AMOXICLAV [Concomitant]
     Active Substance: AMOXICILLIN\CLAVULANATE POTASSIUM
     Indication: BRONCHITIS
     Dosage: UNK
     Route: 064
     Dates: start: 20171111, end: 20171117

REACTIONS (3)
  - Pyelocaliectasis [Recovering/Resolving]
  - Foetal exposure during pregnancy [Unknown]
  - Congenital megaureter [Not Recovered/Not Resolved]

NARRATIVE: CASE EVENT DATE: 20180327
